FAERS Safety Report 24797718 (Version 1)
Quarter: 2025Q1

REPORT INFORMATION
  Report Type: Spontaneous
  Country: US (occurrence: US)
  Receive Date: 20250102
  Receipt Date: 20250102
  Transmission Date: 20250408
  Serious: No
  Sender: Kenvue
  Company Number: US-KENVUE-20241106911

PATIENT
  Sex: Female

DRUGS (1)
  1. IMODIUM A-D [Suspect]
     Active Substance: LOPERAMIDE HYDROCHLORIDE
     Indication: Accidental exposure to product
     Route: 048
     Dates: start: 20241118

REACTIONS (4)
  - Accidental exposure to product [Unknown]
  - Vomiting [Unknown]
  - Failure of child resistant product closure [Unknown]
  - Product container seal issue [Unknown]

NARRATIVE: CASE EVENT DATE: 20241118
